FAERS Safety Report 19624311 (Version 1)
Quarter: 2021Q3

REPORT INFORMATION
  Report Type: Spontaneous
  Country: US (occurrence: US)
  Receive Date: 20210728
  Receipt Date: 20210728
  Transmission Date: 20211014
  Serious: No
  Sender: FDA-Public Use
  Company Number: US-TEVA-2020-US-1837898

PATIENT
  Age: 51 Year
  Sex: Female
  Weight: 131.66 kg

DRUGS (11)
  1. AMLODPINE BESYLATE [Concomitant]
     Dosage: ONGOING
     Route: 048
     Dates: start: 2009
  2. METFORMIN [Concomitant]
     Active Substance: METFORMIN HYDROCHLORIDE
     Dosage: TWICE A DAY
     Route: 048
     Dates: start: 201310, end: 201602
  3. ESOMEPRAZOLE MAGNESIUM. [Concomitant]
     Active Substance: ESOMEPRAZOLE MAGNESIUM
     Dosage: DELAYED RELEASE
     Route: 048
  4. VITAMIN D [Concomitant]
     Active Substance: VITAMIN D NOS
     Route: 048
  5. TAMOXIFEN [Suspect]
     Active Substance: TAMOXIFEN
     Indication: BREAST CANCER
     Dosage: 20 MILLIGRAM DAILY;
     Route: 048
     Dates: start: 20140815
  6. HYDROCHLOROTHIAZIDE. [Concomitant]
     Active Substance: HYDROCHLOROTHIAZIDE
     Route: 048
     Dates: start: 2004, end: 2016
  7. CALCIUM [Concomitant]
     Active Substance: CALCIUM
     Route: 048
  8. PEGFILGRASTIM [Concomitant]
     Active Substance: PEGFILGRASTIM
     Route: 058
  9. MULTIVITAMINS [Concomitant]
     Active Substance: VITAMINS
  10. IRON [Concomitant]
     Active Substance: IRON
     Route: 048
  11. POTASSIUM [Concomitant]
     Active Substance: POTASSIUM
     Route: 048

REACTIONS (2)
  - Headache [Unknown]
  - Hot flush [Unknown]

NARRATIVE: CASE EVENT DATE: 2015
